FAERS Safety Report 6749102-5 (Version None)
Quarter: 2010Q2

REPORT INFORMATION
  Report Type: 
  Country: None (occurrence: None)
  Receive Date: 20100601
  Receipt Date: 20100527
  Transmission Date: 20101027
  Serious: Yes (Hospitalization, Other)
  Sender: FDA-Public Use
  Company Number: PT-BRISTOL-MYERS SQUIBB COMPANY-15108475

PATIENT
  Age: 41 Year
  Sex: Female

DRUGS (3)
  1. REYATAZ [Suspect]
     Indication: HIV INFECTION
     Dosage: STARTED ABOUT 4 YRS AGO.
     Route: 048
     Dates: start: 20060101
  2. RITONAVIR [Suspect]
     Dosage: STARTED ABOUT 4 YRS AGO.
     Dates: start: 20060101
  3. TRUVADA [Suspect]
     Dosage: 1 DF= 200+245 MG; STARTED ABOUT 4 YRS AGO.
     Dates: start: 20060101

REACTIONS (3)
  - HYPERBILIRUBINAEMIA [None]
  - HYPOPHOSPHATAEMIA [None]
  - OSTEOMALACIA [None]
